FAERS Safety Report 10142747 (Version 1)
Quarter: 2014Q2

REPORT INFORMATION
  Report Type: Spontaneous
  Country: GB (occurrence: None)
  Receive Date: 20140428
  Receipt Date: 20140428
  Transmission Date: 20141212
  Serious: Yes (Life-Threatening)
  Sender: FDA-Public Use
  Company Number: GB-014623

PATIENT
  Age: 71 Year
  Sex: Male
  Weight: 104 kg

DRUGS (15)
  1. FIRMAGON /01764801/ (FIRMAGON) 80 MG (NOT SPECIFIED) [Suspect]
     Indication: PROSTATE CANCER
     Route: 058
     Dates: start: 201303, end: 20131203
  2. ALLOPURINOL [Concomitant]
  3. ASPIRIN [Concomitant]
  4. ATENOLOL [Concomitant]
  5. ATORVASTATIN [Concomitant]
  6. EPLERENONE [Concomitant]
  7. FUROSEMIDE [Concomitant]
  8. GLYCERYL TRINITRATE [Concomitant]
  9. ISOSORBIDE MONONITRATE [Concomitant]
  10. LANSOPRAZOLE [Concomitant]
  11. LISINOPRIL [Concomitant]
  12. PARACETAMOL [Concomitant]
  13. PAROXETINE [Concomitant]
  14. SILDENAFIL [Concomitant]
  15. TAMSULOSIN [Concomitant]

REACTIONS (1)
  - Anaphylactic reaction [None]
